FAERS Safety Report 8118516-3 (Version None)
Quarter: 2012Q1

REPORT INFORMATION
  Report Type: 
  Country: None (occurrence: None)
  Receive Date: 20120201
  Receipt Date: 20120116
  Transmission Date: 20120608
  Serious: Yes (Hospitalization)
  Sender: FDA-Public Use
  Company Number: 16316952

PATIENT
  Age: 49 Year
  Sex: Male

DRUGS (14)
  1. BRIVANIB ALANINATE [Suspect]
     Indication: GASTROINTESTINAL CANCER METASTATIC
     Dosage: 600 MILLIGRAM 2 DAY, ORAL
     Route: 048
     Dates: start: 20111101, end: 20111221
  2. FOLIC ACID [Suspect]
     Indication: GASTROINTESTINAL CANCER METASTATIC
     Dosage: 680 MILLIGRAM TOTAL, IV
     Route: 042
     Dates: start: 20111101, end: 20111220
  3. ZOPICLONE [Concomitant]
  4. ACETYLSALICYLIC ACID SRT [Suspect]
     Dosage: 81 MILLIGRAM 1/1 DAY, ORAL
     Route: 048
     Dates: start: 20111101
  5. BISOPROLOL FUMARATE [Concomitant]
  6. IRINOTECAN HCL [Suspect]
     Indication: GASTROINTESTINAL CANCER METASTATIC
     Dosage: 255 MILLIGRAM TOTAL; IV
     Route: 042
     Dates: start: 20111101, end: 20111220
  7. OCTREOTIDE ACETATE [Concomitant]
  8. OMEPRAZOLE [Concomitant]
  9. IMMODIUM (LOPERAMIDE HCL) [Concomitant]
  10. LISINOPRIL [Concomitant]
  11. DEXAMETHASONE [Concomitant]
  12. LOMOTIL [Concomitant]
  13. FLUOROURACIL [Suspect]
     Indication: GASTROINTESTINAL CANCER METASTATIC
     Dosage: 544 MILLIGRAM TOTAL, IVB
     Route: 040
     Dates: start: 20111101, end: 20111220
  14. DEMEROL (PETHIDINE HCL [Concomitant]

REACTIONS (4)
  - HAEMOGLOBIN DECREASED [None]
  - HAEMATOCRIT DECREASED [None]
  - GASTROINTESTINAL HAEMORRHAGE [None]
  - RED BLOOD CELL COUNT DECREASED [None]
